FAERS Safety Report 24395180 (Version 1)
Quarter: 2024Q4

REPORT INFORMATION
  Report Type: Spontaneous
  Country: US (occurrence: US)
  Receive Date: 20241004
  Receipt Date: 20241004
  Transmission Date: 20250115
  Serious: Yes (Hospitalization, Other)
  Sender: CHEPLAPHARM
  Company Number: US-ROCHE-10000087915

PATIENT
  Age: 67 Year
  Sex: Male

DRUGS (8)
  1. CLONAZEPAM [Suspect]
     Active Substance: CLONAZEPAM
     Indication: Product used for unknown indication
     Dosage: DAILY DOSE: 2 MILLIGRAM
     Route: 048
  2. XOLAIR [Suspect]
     Active Substance: OMALIZUMAB
     Indication: Asthma
     Route: 058
  3. ASPIRIN [Concomitant]
     Active Substance: ASPIRIN
     Dosage: 81 MG BY MOUTH DAILY?DAILY DOSE: 81 MILLIGRAM
     Route: 048
  4. PRILOSEC [Concomitant]
     Active Substance: OMEPRAZOLE MAGNESIUM
     Dosage: 40 MG BY MOUTH DAILY?DAILY DOSE: 40 MILLIGRAM
     Route: 048
  5. VENTOLIN HFA [Concomitant]
     Active Substance: ALBUTEROL SULFATE
     Indication: Dyspnoea
     Dosage: 90 MCG USE 2 INHALATIONS EVERY 6 HRS AS NEEDED?DAILY DOSE: 720 MICROGRAM
     Route: 055
  6. FLOMAX [Concomitant]
     Active Substance: TAMSULOSIN HYDROCHLORIDE
     Dosage: 0.4 MG CAPSULE DAILY ONCE?DAILY DOSE: 0.4 MILLIGRAM
  7. SYMBICORT [Concomitant]
     Active Substance: BUDESONIDE\FORMOTEROL FUMARATE DIHYDRATE
     Dosage: TWO PUFFS INTO LUNGS 2 TIMES DAILY
     Route: 055
  8. SINGULAIR [Concomitant]
     Active Substance: MONTELUKAST SODIUM
     Dosage: 10 MG TAB

REACTIONS (23)
  - Tardive dyskinesia [Unknown]
  - Acquired diaphragmatic eventration [Unknown]
  - Bipolar I disorder [Unknown]
  - Cervical spinal stenosis [Unknown]
  - Hyperbilirubinaemia [Unknown]
  - Atrial fibrillation [Unknown]
  - Obstructive sleep apnoea syndrome [Unknown]
  - Back pain [Unknown]
  - Electrocardiogram abnormal [Unknown]
  - Weight abnormal [Unknown]
  - Insomnia [Unknown]
  - Abdominal pain [Unknown]
  - Liver function test increased [Unknown]
  - Skin abrasion [Unknown]
  - Abdominal pain [Unknown]
  - Rib fracture [Unknown]
  - Contusion [Unknown]
  - Neck pain [Unknown]
  - Sciatica [Unknown]
  - Chronic obstructive pulmonary disease [Unknown]
  - Mental status changes [Unknown]
  - Restrictive pulmonary disease [Unknown]
  - Blood immunoglobulin E increased [Unknown]
